FAERS Safety Report 16608738 (Version 1)
Quarter: 2019Q3

REPORT INFORMATION
  Report Type: Spontaneous
  Country: US (occurrence: US)
  Receive Date: 20190719
  Receipt Date: 20190719
  Transmission Date: 20191004
  Serious: Yes (Hospitalization)
  Sender: FDA-Public Use
  Company Number: None

PATIENT
  Age: 71 Year
  Sex: Female
  Weight: 60.5 kg

DRUGS (4)
  1. METFORMIN [Concomitant]
     Active Substance: METFORMIN HYDROCHLORIDE
  2. DONEPEZIL 10 MG [Concomitant]
     Active Substance: DONEPEZIL HYDROCHLORIDE
  3. INVOKANA [Suspect]
     Active Substance: CANAGLIFLOZIN
     Indication: DIABETES MELLITUS
     Route: 048
  4. ASPIRIN 81 MG [Concomitant]
     Active Substance: ASPIRIN

REACTIONS (3)
  - Hyperhidrosis [None]
  - Euglycaemic diabetic ketoacidosis [None]
  - Dyspnoea [None]

NARRATIVE: CASE EVENT DATE: 20190701
